FAERS Safety Report 8988408 (Version 1)
Quarter: 2013Q1

REPORT INFORMATION
  Report Type: Spontaneous
  Country: US (occurrence: None)
  Receive Date: 20121221
  Receipt Date: 20121221
  Transmission Date: 20140127
  Serious: No
  Sender: FDA-Public Use
  Company Number: None

PATIENT
  Age: 82 Year
  Sex: Male
  Weight: 82.1 kg

DRUGS (10)
  1. EVEROLIMUS [Suspect]
     Route: 048
     Dates: start: 20121011
  2. BICALUTAMIDE [Suspect]
     Route: 048
     Dates: start: 20121011
  3. CALCIUM CARBONATE/VITAMIN D3 [Concomitant]
  4. LOVASTATIN (MEVACOR) 10 MG PO TABLET [Concomitant]
  5. MILK THISTLE 500 MG CAP [Concomitant]
  6. MULTIVITAMIN (HEXAVITAMIN) TABLET [Concomitant]
  7. OMEGA-3 FATTY ACIDS ( FISH OIL CONCENTRATE PO) [Concomitant]
  8. TRIAMTERENE 37.5 MG/ HYDROCHLOROTHIAZIDE 25MG (MAXZIDE-25) 37.5-25 MG TABLET [Concomitant]
  9. ZOLADEX 10.8 MG SUBQ IMPLANT [Concomitant]
  10. PRAVASTATIN (PRAVACHOL) 10 MG TABLET [Concomitant]

REACTIONS (1)
  - Pulmonary embolism [None]
